FAERS Safety Report 10128051 (Version 4)
Quarter: 2014Q3

REPORT INFORMATION
  Report Type: Spontaneous
  Country: BR (occurrence: BR)
  Receive Date: 20140428
  Receipt Date: 20140822
  Transmission Date: 20150326
  Serious: Yes (Death, Life-Threatening, Other)
  Sender: FDA-Public Use
  Company Number: BR-ROCHE-1386196

PATIENT
  Age: 77 Year
  Sex: Female
  Weight: 60 kg

DRUGS (17)
  1. OXALIPLATIN. [Suspect]
     Active Substance: OXALIPLATIN
     Indication: HEPATIC CANCER
  2. LEUCOVORIN [Suspect]
     Active Substance: LEUCOVORIN
     Indication: HEPATIC CANCER
  3. FLUOROURACIL. [Suspect]
     Active Substance: FLUOROURACIL
     Indication: COLON CANCER
     Route: 065
     Dates: start: 20130904, end: 20140324
  4. METFORMIN [Concomitant]
     Active Substance: METFORMIN HYDROCHLORIDE
  5. LEUCOVORIN [Suspect]
     Active Substance: LEUCOVORIN
     Indication: COLON CANCER
     Route: 065
     Dates: start: 201309
  6. FLUOROURACIL. [Suspect]
     Active Substance: FLUOROURACIL
     Indication: PALLIATIVE CARE
  7. AVASTIN [Suspect]
     Active Substance: BEVACIZUMAB
     Indication: HEPATIC CANCER
  8. AVASTIN [Suspect]
     Active Substance: BEVACIZUMAB
     Indication: PALLIATIVE CARE
  9. OXALIPLATIN. [Suspect]
     Active Substance: OXALIPLATIN
     Indication: COLON CANCER
     Route: 042
     Dates: start: 20130904, end: 20140324
  10. OXALIPLATIN. [Suspect]
     Active Substance: OXALIPLATIN
     Indication: PALLIATIVE CARE
  11. FOLINIC ACID [Suspect]
     Active Substance: LEUCOVORIN
     Indication: PALLIATIVE CARE
     Route: 065
  12. OMEPRAZOLE. [Concomitant]
     Active Substance: OMEPRAZOLE
  13. NPH INSULIN [Concomitant]
     Active Substance: INSULIN BEEF
  14. PURAN [Concomitant]
     Active Substance: LEVOTHYROXINE SODIUM
  15. AVASTIN [Suspect]
     Active Substance: BEVACIZUMAB
     Indication: COLON CANCER
     Route: 042
     Dates: start: 20130904, end: 20140324
  16. FLUOROURACIL. [Suspect]
     Active Substance: FLUOROURACIL
     Indication: HEPATIC CANCER
  17. CLEXANE [Concomitant]
     Active Substance: ENOXAPARIN SODIUM

REACTIONS (4)
  - Disease progression [Fatal]
  - Restrictive pulmonary disease [Unknown]
  - Pulmonary fibrosis [Not Recovered/Not Resolved]
  - Respiratory failure [Fatal]

NARRATIVE: CASE EVENT DATE: 20140407
